FAERS Safety Report 8152116-4 (Version None)
Quarter: 2012Q1

REPORT INFORMATION
  Report Type: 
  Country: None (occurrence: None)
  Receive Date: 20120221
  Receipt Date: 20120217
  Transmission Date: 20120608
  Serious: Yes (Other)
  Sender: FDA-Public Use
  Company Number: US-PFIZER INC-2012043714

PATIENT
  Sex: Female
  Weight: 95.238 kg

DRUGS (2)
  1. PREMARIN [Suspect]
     Indication: HORMONE REPLACEMENT THERAPY
     Dosage: 1.25 MG, 1X/DAY
     Dates: start: 20060101
  2. ATENOLOL [Concomitant]
     Indication: BLOOD PRESSURE ABNORMAL
     Dosage: 50 MG, 1X/DAY

REACTIONS (4)
  - INTERVERTEBRAL DISC PROTRUSION [None]
  - ROTATOR CUFF SYNDROME [None]
  - MUSCLE DISORDER [None]
  - PAIN IN EXTREMITY [None]
